FAERS Safety Report 19195606 (Version 5)
Quarter: 2024Q1

REPORT INFORMATION
  Report Type: Spontaneous
  Country: US (occurrence: US)
  Receive Date: 20210429
  Receipt Date: 20240321
  Transmission Date: 20240409
  Serious: Yes (Other)
  Sender: FDA-Public Use
  Company Number: US-PFIZER INC-2021364429

PATIENT
  Age: 68 Year
  Sex: Female
  Weight: 80.74 kg

DRUGS (1)
  1. IBRANCE [Suspect]
     Active Substance: PALBOCICLIB
     Indication: Breast cancer metastatic
     Dosage: ONE EVERY DAY FOR 21 DAYS, 1 WEEK OFF, THEN START TAKING NEXT ROUND
     Dates: start: 2019

REACTIONS (7)
  - Shoulder fracture [Unknown]
  - Arthritis [Unknown]
  - Illness [Unknown]
  - Memory impairment [Unknown]
  - Arthropathy [Unknown]
  - Condition aggravated [Unknown]
  - Malaise [Unknown]
